FAERS Safety Report 8247378-9 (Version None)
Quarter: 2012Q1

REPORT INFORMATION
  Report Type: 
  Country: None (occurrence: None)
  Receive Date: 20120330
  Receipt Date: 20120327
  Transmission Date: 20120608
  Serious: Yes (Hospitalization, Other)
  Sender: FDA-Public Use
  Company Number: BR-PFIZER INC-2010167709

PATIENT
  Age: 40 Year
  Sex: Male

DRUGS (12)
  1. ALPRAZOLAM [Suspect]
     Indication: ANXIETY
  2. DORFLEX [Concomitant]
     Dosage: 1 TABLET/DAY
     Dates: start: 19900101
  3. CENTRUM [Concomitant]
     Dosage: UNK
     Dates: start: 19900101
  4. ALPRAZOLAM [Suspect]
     Dosage: UNK
  5. ASPIRIN [Suspect]
     Dosage: UNK
  6. HYGROTON [Concomitant]
     Indication: BLOOD PRESSURE INCREASED
     Dosage: UNK
     Dates: start: 19800101
  7. PROPRANOLOL [Concomitant]
     Indication: BLOOD PRESSURE INCREASED
     Dosage: UNK
     Dates: start: 19800101
  8. ALPRAZOLAM [Suspect]
     Indication: DEPRESSION
  9. LEXAPRO [Concomitant]
     Indication: ANTIDEPRESSANT THERAPY
     Dosage: 5 MG, 1X/DAY
     Dates: start: 20000101
  10. ALPRAZOLAM [Suspect]
     Indication: PANIC DISORDER
     Dosage: 1 MG, 2X/DAY
     Route: 048
     Dates: start: 19900101
  11. LEXAPRO [Concomitant]
     Indication: DEPRESSION
  12. MODURETIC 5-50 [Concomitant]
     Indication: BLOOD PRESSURE INCREASED
     Dosage: 25/2.5MG
     Dates: start: 19800101

REACTIONS (14)
  - RETINAL DISORDER [None]
  - STRESS [None]
  - AGITATION [None]
  - VISION BLURRED [None]
  - VISUAL IMPAIRMENT [None]
  - MYALGIA [None]
  - HYPERACUSIS [None]
  - HYPERSENSITIVITY [None]
  - PANIC REACTION [None]
  - DRUG DEPENDENCE [None]
  - EYE OEDEMA [None]
  - HEADACHE [None]
  - NERVOUSNESS [None]
  - DISTURBANCE IN SOCIAL BEHAVIOUR [None]
